FAERS Safety Report 4283762-6 (Version None)
Quarter: 2004Q1

REPORT INFORMATION
  Report Type: 
  Country: None (occurrence: None)
  Receive Date: 20040130
  Receipt Date: 20040130
  Transmission Date: 20041129
  Serious: Yes (Hospitalization)
  Sender: FDA-Public Use
  Company Number: None

PATIENT
  Age: 78 Year
  Sex: Female
  Weight: 58.9676 kg

DRUGS (4)
  1. VANCOMYCIN [Suspect]
     Indication: BACTERIA STOOL IDENTIFIED
     Dosage: 1000 MG Q24 HR IV
     Route: 042
  2. VANCOMYCIN [Suspect]
     Indication: TOXIC DILATATION OF COLON
     Dosage: 1000 MG Q24 HR IV
     Route: 042
  3. VANCOMYCIN [Suspect]
     Dosage: 500 MG Q6 HR RECTAL
     Route: 054
  4. METRONIDAZOLE [Concomitant]

REACTIONS (6)
  - ABDOMINAL PAIN [None]
  - ABNORMAL FAECES [None]
  - BACTERIA STOOL IDENTIFIED [None]
  - NAUSEA [None]
  - TOXIC DILATATION OF COLON [None]
  - VOMITING [None]
